FAERS Safety Report 25415875 (Version 1)
Quarter: 2025Q2

REPORT INFORMATION
  Report Type: Spontaneous
  Country: US (occurrence: US)
  Receive Date: 20250610
  Receipt Date: 20250610
  Transmission Date: 20250716
  Serious: No
  Sender: CSL BEHRING
  Company Number: US-BEH-2025208621

PATIENT
  Sex: Female

DRUGS (3)
  1. PRIVIGEN [Suspect]
     Active Substance: HUMAN IMMUNOGLOBULIN G
     Indication: Immunodeficiency common variable
     Dosage: 40 G, QMT
     Route: 042
     Dates: start: 202202
  2. PRIVIGEN [Suspect]
     Active Substance: HUMAN IMMUNOGLOBULIN G
     Dosage: 10 G, QMT
     Route: 042
     Dates: start: 202202
  3. VERZENIO [Suspect]
     Active Substance: ABEMACICLIB

REACTIONS (2)
  - Peripheral swelling [Unknown]
  - Joint swelling [Unknown]
